FAERS Safety Report 7901763-0 (Version None)
Quarter: 2011Q4

REPORT INFORMATION
  Report Type: 
  Country: None (occurrence: None)
  Receive Date: 20111108
  Receipt Date: 20111025
  Transmission Date: 20120403
  Serious: Yes (Hospitalization, Other)
  Sender: FDA-Public Use
  Company Number: PHEH2011US08094

PATIENT
  Sex: Female

DRUGS (1)
  1. RECLAST [Suspect]
     Dosage: ONE-YEAR DOSAGE, UNK
     Route: 042
     Dates: start: 20090701

REACTIONS (8)
  - ANXIETY [None]
  - PULMONARY EMBOLISM [None]
  - INJURY [None]
  - EMOTIONAL DISTRESS [None]
  - ANHEDONIA [None]
  - CARDIAC ARREST [None]
  - FEMUR FRACTURE [None]
  - PAIN [None]
